FAERS Safety Report 14623259 (Version 1)
Quarter: 2018Q1

REPORT INFORMATION
  Report Type: Spontaneous
  Country: US (occurrence: US)
  Receive Date: 20180312
  Receipt Date: 20180312
  Transmission Date: 20180509
  Serious: No
  Sender: FDA-Public Use
  Company Number: US-009507513-1803USA000322

PATIENT
  Age: 44 Year
  Sex: Female
  Weight: 69.39 kg

DRUGS (3)
  1. NEXPLANON [Suspect]
     Active Substance: ETONOGESTREL
     Indication: MENSTRUATION IRREGULAR
     Dosage: IMPLANT, LEFT ARM, EVERY 3 YEARS
     Route: 059
     Dates: start: 20170109
  2. NEURONTIN [Concomitant]
     Active Substance: GABAPENTIN
     Indication: NERVE INJURY
  3. CLONAZEPAM. [Concomitant]
     Active Substance: CLONAZEPAM
     Indication: ANXIETY

REACTIONS (5)
  - Product use in unapproved indication [Unknown]
  - Implant site pain [Not Recovered/Not Resolved]
  - Device dislocation [Unknown]
  - Nausea [Unknown]
  - Mood swings [Unknown]

NARRATIVE: CASE EVENT DATE: 20170109
